FAERS Safety Report 5741202-1 (Version None)
Quarter: 2008Q2

REPORT INFORMATION
  Report Type: 
  Country: None (occurrence: None)
  Receive Date: 20080516
  Receipt Date: 20080510
  Transmission Date: 20081010
  Serious: Yes (Other)
  Sender: FDA-Public Use
  Company Number: GB-PFIZER INC-2008040787

PATIENT

DRUGS (1)
  1. PROSTIN VR SOLUTION, STERILE [Suspect]
     Indication: PATENT DUCTUS ARTERIOSUS
     Route: 042

REACTIONS (1)
  - POOR VENOUS ACCESS [None]
